FAERS Safety Report 8134643-9 (Version None)
Quarter: 2012Q1

REPORT INFORMATION
  Report Type: 
  Country: None (occurrence: None)
  Receive Date: 20120214
  Receipt Date: 20120208
  Transmission Date: 20120608
  Serious: Yes (Hospitalization, Other)
  Sender: FDA-Public Use
  Company Number: PT-SANOFI-AVENTIS-2012SA008290

PATIENT
  Age: 69 Year
  Sex: Female

DRUGS (4)
  1. DEXAMETHASONE [Concomitant]
     Indication: PREMEDICATION
     Route: 042
     Dates: end: 20120103
  2. CLEMASTINE FUMARATE [Concomitant]
     Indication: PREMEDICATION
     Route: 042
     Dates: start: 20120103, end: 20120103
  3. TAXOTERE [Suspect]
     Indication: BREAST CANCER
     Route: 042
     Dates: start: 20120103, end: 20120103
  4. ONDANSETRON [Concomitant]
     Indication: PREMEDICATION
     Route: 042
     Dates: start: 20120103, end: 20120103

REACTIONS (3)
  - HYPERTENSION [None]
  - RENAL PAIN [None]
  - POLYURIA [None]
